FAERS Safety Report 20317489 (Version 1)
Quarter: 2022Q1

REPORT INFORMATION
  Report Type: Spontaneous
  Country: US (occurrence: US)
  Receive Date: 20220110
  Receipt Date: 20220110
  Transmission Date: 20220423
  Serious: No
  Sender: FDA-Public Use
  Company Number: US-BAYER-2022A002438

PATIENT
  Age: 62 Year
  Sex: Male

DRUGS (4)
  1. MIRALAX [Suspect]
     Active Substance: POLYETHYLENE GLYCOL 3350
     Indication: Intestinal obstruction
     Dosage: UNK
     Route: 048
     Dates: start: 2017
  2. BISACODYL\DOCUSATE SODIUM [Suspect]
     Active Substance: BISACODYL\DOCUSATE SODIUM
     Route: 048
     Dates: start: 2017
  3. HIGH BLOOD PRESSURURE [Concomitant]
  4. CHOLESTEROL [Concomitant]
     Active Substance: CHOLESTEROL

REACTIONS (2)
  - Product use in unapproved indication [Unknown]
  - Incorrect product administration duration [Unknown]

NARRATIVE: CASE EVENT DATE: 20201201
